FAERS Safety Report 15701742 (Version 4)
Quarter: 2020Q3

REPORT INFORMATION
  Report Type: Report from Study
  Country: US (occurrence: US)
  Receive Date: 20181208
  Receipt Date: 20200821
  Transmission Date: 20201102
  Serious: Yes (Hospitalization, Other)
  Sender: FDA-Public Use
  Company Number: US-AMGEN INC.-USASL2018173650

PATIENT
  Age: 53 Year
  Sex: Female

DRUGS (13)
  1. METFORMIN ER [Concomitant]
     Active Substance: METFORMIN HYDROCHLORIDE
     Dosage: UNK
     Dates: end: 2018
  2. VITAMIN D [Concomitant]
     Active Substance: VITAMIN D NOS
     Dosage: UNK
     Dates: end: 2018
  3. DESIPRAMINE [Concomitant]
     Active Substance: DESIPRAMINE
     Dosage: UNK
     Dates: end: 2018
  4. DEXILANT [Concomitant]
     Active Substance: DEXLANSOPRAZOLE
     Dosage: UNK
     Dates: end: 2018
  5. AIMOVIG [Suspect]
     Active Substance: ERENUMAB-AOOE
     Indication: PRODUCT USED FOR UNKNOWN INDICATION
     Dosage: 70 MG, QMO
     Route: 065
     Dates: start: 201807, end: 201810
  6. SYNTHROID [Concomitant]
     Active Substance: LEVOTHYROXINE SODIUM
     Dosage: UNK
     Dates: end: 2018
  7. FENOFIBRATE. [Concomitant]
     Active Substance: FENOFIBRATE
     Dosage: UNK
     Dates: end: 2018
  8. TROKENDI [Concomitant]
     Active Substance: TOPIRAMATE
     Dosage: UNK
     Dates: end: 2018
  9. CYTOMEL [Concomitant]
     Active Substance: LIOTHYRONINE SODIUM
     Dosage: UNK
     Dates: end: 2018
  10. MAGNESIUM [Concomitant]
     Active Substance: MAGNESIUM
     Dosage: UNK
  11. AIMOVIG [Suspect]
     Active Substance: ERENUMAB-AOOE
     Dosage: 140 MG, QMO
     Route: 065
     Dates: start: 201811, end: 201811
  12. TRAZODONE [Concomitant]
     Active Substance: TRAZODONE HYDROCHLORIDE
     Dosage: UNK
     Dates: end: 2018
  13. RIBOFLAVIN [Concomitant]
     Active Substance: RIBOFLAVIN
     Dosage: UNK
     Dates: end: 2018

REACTIONS (12)
  - Multiple organ dysfunction syndrome [Unknown]
  - Diarrhoea [Unknown]
  - Product dose omission issue [Unknown]
  - Hyperthyroidism [Unknown]
  - Hypokalaemia [Unknown]
  - Lip dry [Unknown]
  - Serum sickness [Unknown]
  - Acute kidney injury [Unknown]
  - Abdominal pain [Unknown]
  - Visual impairment [Unknown]
  - Abdominal discomfort [Recovered/Resolved]
  - Oral discomfort [Recovered/Resolved]

NARRATIVE: CASE EVENT DATE: 2018
